FAERS Safety Report 10080953 (Version 2)
Quarter: 2014Q2

REPORT INFORMATION
  Report Type: Spontaneous
  Country: US (occurrence: US)
  Receive Date: 20140416
  Receipt Date: 20140512
  Transmission Date: 20141212
  Serious: Yes (Hospitalization)
  Sender: FDA-Public Use
  Company Number: US-BAYER-2014-056440

PATIENT
  Age: 19 Year
  Sex: Female

DRUGS (4)
  1. YASMIN [Suspect]
  2. TORADOL [Concomitant]
  3. CEFTRIAXONE [Concomitant]
  4. VICODIN [Concomitant]

REACTIONS (2)
  - Pulmonary embolism [Recovered/Resolved]
  - Cholecystitis chronic [Recovered/Resolved]
